FAERS Safety Report 19735435 (Version 1)
Quarter: 2021Q3

REPORT INFORMATION
  Report Type: Spontaneous
  Country: IN (occurrence: IN)
  Receive Date: 20210823
  Receipt Date: 20210823
  Transmission Date: 20211014
  Serious: Yes (Death, Other)
  Sender: FDA-Public Use
  Company Number: IN-PFIZER INC-2017075681

PATIENT
  Age: 65 Year
  Sex: Female
  Weight: 73.5 kg

DRUGS (10)
  1. FEMPRO [Concomitant]
     Active Substance: LETROZOLE
     Dosage: 2.5 MG, ONCE DAILY
  2. ZOLDONAT [Concomitant]
     Dosage: 4 MG, IN 100ML NS OVER 15 MINS: EVERY 3 MONTH
     Dates: start: 20171113
  3. OROFER [Concomitant]
     Dosage: UNK, 2X/DAY
  4. PALBACE [Suspect]
     Active Substance: PALBOCICLIB
     Indication: BREAST CANCER METASTATIC
     Dosage: 125 MG, CYCLIC (DAYS 1?21, GAP FOR 7 DAYS)
     Route: 048
     Dates: start: 20170120
  5. CREMAFFIN [Concomitant]
     Dosage: 10 ML, 1X/DAY (AT BEDTIME)
  6. PALBACE [Suspect]
     Active Substance: PALBOCICLIB
     Dosage: 125 MG, 1X/DAY
     Route: 048
     Dates: start: 20170113, end: 20191230
  7. SHELCAL [Concomitant]
     Active Substance: CALCIUM CARBONATE\CHOLECALCIFEROL
     Dosage: 1 TABLET (DF), ONCE DAILY
  8. CREMAFFIN [Concomitant]
     Dosage: 30 ML, 1X/DAY (AT BEDTIME)
  9. FOLVITE [Concomitant]
     Active Substance: FOLIC ACID
     Dosage: 5 MG, 1X/DAY
  10. LETROZOLE. [Concomitant]
     Active Substance: LETROZOLE
     Dosage: 2.5 MG, UNK

REACTIONS (19)
  - Neoplasm progression [Unknown]
  - Red blood cell count decreased [Not Recovered/Not Resolved]
  - Body temperature decreased [Unknown]
  - Platelet count decreased [Unknown]
  - Hepatic steatosis [Unknown]
  - Atelectasis [Unknown]
  - Death [Fatal]
  - Haemoglobin decreased [Not Recovered/Not Resolved]
  - Cytopenia [Unknown]
  - White blood cell count decreased [Recovered/Resolved]
  - Body temperature increased [Recovered/Resolved]
  - Haematocrit decreased [Not Recovered/Not Resolved]
  - Alopecia [Recovering/Resolving]
  - Pleural effusion [Recovering/Resolving]
  - Weight increased [Unknown]
  - Lymphocyte percentage increased [Unknown]
  - Red cell distribution width increased [Not Recovered/Not Resolved]
  - Hepatomegaly [Unknown]
  - Nausea [Recovered/Resolved]

NARRATIVE: CASE EVENT DATE: 20170503
